FAERS Safety Report 8910640 (Version 1)
Quarter: 2012Q4

REPORT INFORMATION
  Report Type: Spontaneous
  Country: IT (occurrence: None)
  Receive Date: 20121108
  Receipt Date: 20121108
  Transmission Date: 20130627
  Serious: Yes (Other)
  Sender: FDA-Public Use
  Company Number: 2012CP000143

PATIENT
  Age: 80 Year
  Sex: Female

DRUGS (2)
  1. PERFALGAN [Suspect]
     Indication: PROCEDURAL PAIN
     Route: 042
     Dates: start: 20121017, end: 20121017
  2. AUGMENTIN [Concomitant]

REACTIONS (1)
  - Hepatitis acute [None]
